FAERS Safety Report 21527891 (Version 2)
Quarter: 2022Q4

REPORT INFORMATION
  Report Type: Spontaneous
  Country: US (occurrence: US)
  Receive Date: 20221031
  Receipt Date: 20221031
  Transmission Date: 20230112
  Serious: No
  Sender: FDA-Public Use
  Company Number: US-RECKITT BENCKISER HEALTHCARE INT LIMITED-RB-087335-2022

PATIENT
  Age: 39 Year
  Sex: Female

DRUGS (2)
  1. MUCINEX D MAXIMUM STRENGTH [Suspect]
     Active Substance: GUAIFENESIN\PSEUDOEPHEDRINE HYDROCHLORIDE
     Indication: Respiratory tract congestion
     Dosage: 1 DOSAGE FORM, QD, MORNING
     Route: 048
     Dates: start: 20220325
  2. MUCINEX [Suspect]
     Active Substance: GUAIFENESIN
     Indication: Respiratory tract congestion
     Dosage: 1 DOSAGE FORM, QD, NIGHT TIME
     Route: 048
     Dates: start: 20220324

REACTIONS (3)
  - Lip pain [Not Recovered/Not Resolved]
  - Palpitations [Not Recovered/Not Resolved]
  - Lip swelling [Not Recovered/Not Resolved]

NARRATIVE: CASE EVENT DATE: 20220324
